FAERS Safety Report 5922648-5 (Version None)
Quarter: 2008Q4

REPORT INFORMATION
  Report Type: 
  Country: None (occurrence: None)
  Receive Date: 20081014
  Receipt Date: 20080924
  Transmission Date: 20090506
  Serious: Yes (Hospitalization)
  Sender: FDA-Public Use
  Company Number: US021965

PATIENT
  Age: 44 Year
  Sex: Male

DRUGS (16)
  1. ACTIQ [Suspect]
     Indication: MIGRAINE
     Dosage: UNK BUCCAL
     Route: 002
     Dates: start: 19990101
  2. ACTIQ [Suspect]
     Indication: MIGRAINE
     Dosage: 400 UG TWO 400UG LOZENGES PER WEEK PRN HEADACHE BUCCAL
     Route: 002
     Dates: start: 20040803, end: 20050117
  3. ACTIQ [Suspect]
     Indication: MIGRAINE
     Dosage: 400 UG AVERAGE ONE 400UG LOZENGES PRE DAY BUCCAL
     Route: 002
     Dates: start: 20050118, end: 20050824
  4. ACTIQ [Suspect]
     Indication: MIGRAINE
     Dosage: 600 UG AVERAGE ONE LOZENGE PER DAY BUCCAL
     Route: 002
     Dates: start: 20050825, end: 20060801
  5. ACTIQ [Suspect]
     Indication: MIGRAINE
     Dosage: 800 UG AVERAGE TWO TO THREE LOZENGES PER DAY BUCCAL
     Route: 002
     Dates: start: 20060801, end: 20060918
  6. DURAGESIC-100 [Suspect]
     Indication: MIGRAINE
     Dosage: DOSE TITRATED UP OVER TIME Q1HR TRANSDERMAL
     Route: 062
     Dates: start: 19990101
  7. DURAGESIC-100 [Suspect]
     Indication: MIGRAINE
     Dosage: 25 UG Q1HR TRANSDERMAL
     Route: 062
     Dates: start: 20060607, end: 20060626
  8. DURAGESIC-100 [Suspect]
     Dosage: 50 UG Q1HR TRANSDERMAL
     Route: 062
     Dates: start: 20060627, end: 20060918
  9. PERCOCET [Suspect]
     Dosage: DOSE TITRATED UP OVER TIME QD ORAL
     Route: 048
     Dates: start: 19990101
  10. PERCOCET [Suspect]
     Dosage: 1 TAB/CAP 10MG OXYCODONE/325MG ACETAMINOPHEN DAILY ORAL
     Route: 048
     Dates: end: 20050227
  11. PERCOCET [Suspect]
     Dosage: 1 TAB/CAP 10MG OXYCODONE/650MG ACETAMINOPHEN DAILY ORAL
     Route: 048
     Dates: start: 20050228, end: 20060212
  12. PERCOCET [Suspect]
     Dosage: 1 TAB/CAP 10MG OXYCODONE/650MG ACETAMINOPHEN DAILY ORAL
     Route: 048
     Dates: start: 20060213, end: 20060327
  13. PERCOCET [Suspect]
     Dosage: 1 TAB/CAP SIX 10MG OXYCODONE/325MG ACETAMINOPHEN TABS A DAY DAILY ORAL
     Route: 048
     Dates: start: 20060427, end: 20060529
  14. PERCOCET [Suspect]
     Dosage: 1 TAB/CAP NINE 10MG OXYCODONE/325MG ACETAMINOPHEN TABS A DAY DAILY ORAL
     Route: 048
     Dates: start: 20060530, end: 20060626
  15. PERCOCET [Suspect]
     Dosage: 1 TAB/CAP SIXTEEN 7.5MG OXYCODONE/325MG ACETAMIONOPHEN TABS A DAY DAILY ORAL
     Route: 048
     Dates: start: 20060822, end: 20060918
  16. CALAN [Concomitant]

REACTIONS (13)
  - ANXIETY [None]
  - ATAXIA [None]
  - CHILLS [None]
  - DEPENDENCE [None]
  - DYSARTHRIA [None]
  - FATIGUE [None]
  - IRRITABILITY [None]
  - MALAISE [None]
  - METABOLIC DISORDER [None]
  - NYSTAGMUS [None]
  - OVERDOSE [None]
  - THINKING ABNORMAL [None]
  - TOOTH LOSS [None]
